FAERS Safety Report 21395130 (Version 1)
Quarter: 2022Q3

REPORT INFORMATION
  Report Type: Other
  Country: DE (occurrence: DE)
  Receive Date: 20220930
  Receipt Date: 20220930
  Transmission Date: 20221026
  Serious: Yes (Hospitalization)
  Sender: FDA-Public Use
  Company Number: DE-MACLEODS PHARMACEUTICALS US LTD-MAC2022037440

PATIENT

DRUGS (3)
  1. ESCITALOPRAM [Suspect]
     Active Substance: ESCITALOPRAM OXALATE
     Indication: Product used for unknown indication
     Dosage: 10 MILLIGRAM, QD (1-0-0-0)
     Route: 048
  2. MIRTAZAPINE [Suspect]
     Active Substance: MIRTAZAPINE
     Indication: Product used for unknown indication
     Dosage: 15 MILLIGRAM, QD (0-1-0-0)
     Route: 048
  3. RISPERIDONE [Suspect]
     Active Substance: RISPERIDONE
     Indication: Product used for unknown indication
     Dosage: 1 MILLIGRAM, QD (0-0-1-0)
     Route: 048

REACTIONS (11)
  - Cardiac discomfort [Unknown]
  - Disturbance in attention [Unknown]
  - General physical health deterioration [Unknown]
  - Dyspnoea [Unknown]
  - Chest pain [Unknown]
  - Chest pain [Unknown]
  - Decreased appetite [Unknown]
  - Insomnia [Unknown]
  - Tremor [Unknown]
  - Tremor [Unknown]
  - Anxiety [Unknown]
